FAERS Safety Report 7060343-2 (Version None)
Quarter: 2010Q4

REPORT INFORMATION
  Report Type: 
  Country: None (occurrence: None)
  Receive Date: 20101025
  Receipt Date: 20101014
  Transmission Date: 20110411
  Serious: Yes (Other)
  Sender: FDA-Public Use
  Company Number: B0669247A

PATIENT
  Sex: Male

DRUGS (5)
  1. AVODART [Suspect]
     Indication: BENIGN PROSTATIC HYPERPLASIA
     Route: 048
     Dates: start: 20091027
  2. FRUCO [Suspect]
     Indication: PRODUCT USED FOR UNKNOWN INDICATION
     Route: 048
     Dates: start: 20100924
  3. ASPIRIN [Concomitant]
     Route: 065
  4. PROZAC [Concomitant]
     Route: 065
  5. UNSPECIFIED MEDICATION [Concomitant]
     Indication: GLAUCOMA
     Route: 065

REACTIONS (6)
  - CARDIOVASCULAR DISORDER [None]
  - CELLULITIS [None]
  - CIRCULATORY COLLAPSE [None]
  - HYPERSENSITIVITY [None]
  - JOINT SWELLING [None]
  - OEDEMA PERIPHERAL [None]
